FAERS Safety Report 5165074-1 (Version None)
Quarter: 2006Q4

REPORT INFORMATION
  Report Type: 
  Country: None (occurrence: None)
  Receive Date: 20061124
  Receipt Date: 20061113
  Transmission Date: 20070319
  Serious: Yes (Life-Threatening, Hospitalization)
  Sender: FDA-Public Use
  Company Number: 2006089714

PATIENT
  Age: 75 Year
  Sex: Female
  Weight: 40 kg

DRUGS (9)
  1. AZULFIDINE EN-TABS [Suspect]
     Indication: ARTHRALGIA
     Dosage: 1 GRAM (500 MG, 2 IN 1 D),  ORAL
     Route: 048
     Dates: start: 20060614, end: 20060617
  2. AZULFIDINE EN-TABS [Suspect]
     Indication: RHEUMATOID ARTHRITIS
     Dosage: 1 GRAM (500 MG, 2 IN 1 D),  ORAL
     Route: 048
     Dates: start: 20060614, end: 20060617
  3. PREDNISOLONE [Concomitant]
  4. ACTONEL [Concomitant]
  5. ZANTAC [Concomitant]
  6. ASPARA-CA (ASPARTATE CALCIUM) [Concomitant]
  7. DEXTROMETHORPHAN HYDROBROMIDE [Concomitant]
  8. LOXONIN (LOXOPROFEN SODIUM) [Concomitant]
  9. MARZULENE (SODIUM GUALENATE) [Concomitant]

REACTIONS (6)
  - BACTERIAL INFECTION [None]
  - DECREASED APPETITE [None]
  - DRUG INEFFECTIVE [None]
  - INTERSTITIAL LUNG DISEASE [None]
  - NAUSEA [None]
  - WHITE BLOOD CELL COUNT DECREASED [None]
